FAERS Safety Report 18463616 (Version 1)
Quarter: 2020Q4

REPORT INFORMATION
  Report Type: Spontaneous
  Country: GB (occurrence: GB)
  Receive Date: 20201104
  Receipt Date: 20201104
  Transmission Date: 20210114
  Serious: Yes (Other)
  Sender: FDA-Public Use
  Company Number: GB-NOVOPROD-764137

PATIENT
  Age: 63 Year
  Sex: Male

DRUGS (2)
  1. NOVORAPID [Suspect]
     Active Substance: INSULIN ASPART
     Indication: TYPE 2 DIABETES MELLITUS
     Dosage: TOTAL DAILY DOSE 36 UNITS, GIVEN OVER 3 X DAILY
     Route: 065
     Dates: start: 2008
  2. NOVORAPID [Suspect]
     Active Substance: INSULIN ASPART
     Dosage: TOTAL DAILY DOSE 36 UNITS, GIVEN OVER 3 X DAILY
     Route: 065

REACTIONS (2)
  - Cerebrovascular accident [Recovered/Resolved]
  - Cerebrovascular accident [Recovered/Resolved]

NARRATIVE: CASE EVENT DATE: 2008
